FAERS Safety Report 5303041-5 (Version None)
Quarter: 2007Q2

REPORT INFORMATION
  Report Type: 
  Country: None (occurrence: None)
  Receive Date: 20070413
  Receipt Date: 20070328
  Transmission Date: 20071010
  Serious: Yes (Other)
  Sender: FDA-Public Use
  Company Number: TRP_0926_2007

PATIENT
  Sex: Male

DRUGS (2)
  1. RIBAPAK/ RIBAVIRIN/ THREE RIVERS PHARMA [Suspect]
     Indication: DRUG USE FOR UNKNOWN INDICATION
     Dosage: DF PO
     Route: 048
  2. PEG-INTRON [Suspect]
     Indication: DRUG USE FOR UNKNOWN INDICATION
     Dosage: DF ONCE SC
     Route: 058

REACTIONS (1)
  - HAEMATOCHEZIA [None]
